FAERS Safety Report 9608920 (Version 2)
Quarter: 2013Q4

REPORT INFORMATION
  Report Type: Spontaneous
  Country: US (occurrence: US)
  Receive Date: 20131009
  Receipt Date: 20131009
  Transmission Date: 20140711
  Serious: Yes (Other)
  Sender: FDA-Public Use
  Company Number: US-ABBVIE-13P-163-1151050-00

PATIENT
  Sex: Female
  Weight: 81.72 kg

DRUGS (3)
  1. LUPRON DEPOT [Suspect]
     Indication: ENDOMETRIOSIS
     Route: 050
     Dates: start: 20130725, end: 20130725
  2. LUPRON DEPOT [Suspect]
     Indication: UTERINE LEIOMYOMA
  3. UNKNOWN ASTHMA INHALER [Concomitant]
     Indication: ASTHMA

REACTIONS (6)
  - Suicidal ideation [Recovering/Resolving]
  - Depression [Recovering/Resolving]
  - Blood pressure increased [Recovering/Resolving]
  - Panic attack [Not Recovered/Not Resolved]
  - Anxiety [Not Recovered/Not Resolved]
  - Mood swings [Not Recovered/Not Resolved]
